FAERS Safety Report 5374884-7 (Version None)
Quarter: 2007Q2

REPORT INFORMATION
  Report Type: 
  Country: None (occurrence: None)
  Receive Date: 20070629
  Receipt Date: 20070627
  Transmission Date: 20071010
  Serious: Yes (Hospitalization)
  Sender: FDA-Public Use
  Company Number: ES-MERCK-0705ESP00040

PATIENT
  Age: 82 Year
  Sex: Male
  Weight: 58 kg

DRUGS (7)
  1. ZETIA [Suspect]
     Indication: HYPERCHOLESTEROLAEMIA
     Route: 048
     Dates: start: 20060807, end: 20070430
  2. METFORMIN HYDROCHLORIDE AND ROSIGLITAZONE MALEATE [Suspect]
     Indication: DIABETES MELLITUS NON-INSULIN-DEPENDENT
     Route: 048
     Dates: start: 20060516, end: 20070430
  3. VASOTEC [Concomitant]
     Indication: HYPERTENSION
     Route: 048
     Dates: start: 20060120
  4. BISOPROLOL FUMARATE [Concomitant]
     Route: 048
     Dates: start: 20060418
  5. CLOPIDOGREL BISULFATE [Concomitant]
     Route: 048
     Dates: start: 20060120
  6. LEVOFLOXACIN [Concomitant]
     Route: 065
  7. ATORVASTATIN CALCIUM [Concomitant]
     Route: 048
     Dates: start: 20060120

REACTIONS (14)
  - ANOREXIA [None]
  - AORTIC STENOSIS [None]
  - ASTHENIA [None]
  - BLOOD GLUCOSE INCREASED [None]
  - BRADYPHRENIA [None]
  - DYSGEUSIA [None]
  - GALLBLADDER POLYP [None]
  - LIPOMA [None]
  - LIVER DISORDER [None]
  - LIVER FUNCTION TEST ABNORMAL [None]
  - PROSTATIC SPECIFIC ANTIGEN INCREASED [None]
  - SERUM FERRITIN INCREASED [None]
  - SPLEEN DISORDER [None]
  - WEIGHT DECREASED [None]
